FAERS Safety Report 4950213-5 (Version None)
Quarter: 2006Q1

REPORT INFORMATION
  Report Type: 
  Country: None (occurrence: None)
  Receive Date: 20060322
  Receipt Date: 20060316
  Transmission Date: 20060701
  Serious: Yes (Hospitalization)
  Sender: FDA-Public Use
  Company Number: GR-AVENTIS-200612628GDDC

PATIENT
  Age: 66 Year
  Sex: Female

DRUGS (2)
  1. TELITHROMYCIN [Suspect]
     Indication: RESPIRATORY TRACT INFECTION
     Route: 048
     Dates: end: 20060128
  2. IRBESARTAN [Concomitant]
     Indication: HYPERTENSION
     Route: 048

REACTIONS (2)
  - HEPATIC LESION [None]
  - JAUNDICE [None]
